FAERS Safety Report 5122447-0 (Version None)
Quarter: 2006Q4

REPORT INFORMATION
  Report Type: 
  Country: None (occurrence: None)
  Receive Date: 20061004
  Receipt Date: 20060925
  Transmission Date: 20070319
  Serious: Yes (Other)
  Sender: FDA-Public Use
  Company Number: TPA2006A01660

PATIENT
  Age: 5 Decade
  Sex: Female

DRUGS (2)
  1. ROZEREM [Suspect]
     Indication: DRUG USE FOR UNKNOWN INDICATION
     Dosage: 8 MG, QHS, PER ORAL
     Route: 048
     Dates: start: 20060901, end: 20060901
  2. ABILIFY [Concomitant]

REACTIONS (2)
  - ABNORMAL BEHAVIOUR [None]
  - ILL-DEFINED DISORDER [None]
